FAERS Safety Report 12660558 (Version 1)
Quarter: 2016Q3

REPORT INFORMATION
  Report Type: Other
  Country: US (occurrence: US)
  Receive Date: 20160817
  Receipt Date: 20160817
  Transmission Date: 20161109
  Serious: Yes (Other)
  Sender: FDA-Public Use
  Company Number: US-SILARX PHARMACEUTICALS, INC-1056438

PATIENT
  Sex: Female

DRUGS (1)
  1. SILACE [Suspect]
     Active Substance: DOCUSATE SODIUM
     Indication: CONSTIPATION
     Route: 048

REACTIONS (1)
  - Muscle spasms [Unknown]
